FAERS Safety Report 12894713 (Version 2)
Quarter: 2016Q4

REPORT INFORMATION
  Report Type: Spontaneous
  Country: US (occurrence: US)
  Receive Date: 20161028
  Receipt Date: 20161213
  Transmission Date: 20170207
  Serious: Yes (Other)
  Sender: FDA-Public Use
  Company Number: US-ELI_LILLY_AND_COMPANY-US201607007694

PATIENT
  Sex: Female

DRUGS (4)
  1. CYMBALTA [Suspect]
     Active Substance: DULOXETINE HYDROCHLORIDE
     Indication: FIBROMYALGIA
     Dosage: 30 MG, UNKNOWN
     Route: 065
  2. CYMBALTA [Suspect]
     Active Substance: DULOXETINE HYDROCHLORIDE
     Dosage: UNK, UNKNOWN
     Route: 065
     Dates: start: 201411, end: 201501
  3. CYMBALTA [Suspect]
     Active Substance: DULOXETINE HYDROCHLORIDE
     Indication: ABDOMINAL PAIN
     Dosage: 60 MG, UNKNOWN
     Route: 065
  4. CYMBALTA [Suspect]
     Active Substance: DULOXETINE HYDROCHLORIDE
     Dosage: 60 MG, UNKNOWN
     Route: 065

REACTIONS (34)
  - Dizziness [Unknown]
  - Metrorrhagia [Unknown]
  - Pain [Unknown]
  - Drug withdrawal syndrome [Unknown]
  - Nervous system disorder [Unknown]
  - Constipation [Unknown]
  - Muscle spasms [Unknown]
  - Tinnitus [Unknown]
  - Coagulopathy [Unknown]
  - Myalgia [Unknown]
  - Amnesia [Unknown]
  - Nausea [Unknown]
  - Diarrhoea [Unknown]
  - Menstrual disorder [Unknown]
  - Suicidal ideation [Unknown]
  - Feeling abnormal [Unknown]
  - Hyperhidrosis [Unknown]
  - Intentional product misuse [Unknown]
  - Mood swings [Unknown]
  - Asthenia [Unknown]
  - Headache [Unknown]
  - Irritability [Unknown]
  - Nightmare [Unknown]
  - Lethargy [Unknown]
  - Fatigue [Unknown]
  - Affect lability [Unknown]
  - Feeling of body temperature change [Unknown]
  - Chills [Unknown]
  - Vertigo [Unknown]
  - Anxiety [Unknown]
  - Decreased interest [Unknown]
  - Paraesthesia [Unknown]
  - Abnormal dreams [Unknown]
  - Confusional state [Unknown]
